FAERS Safety Report 4921134-9 (Version None)
Quarter: 2006Q1

REPORT INFORMATION
  Report Type: 
  Country: None (occurrence: None)
  Receive Date: 20060217
  Receipt Date: 20060208
  Transmission Date: 20060701
  Serious: Yes (Other)
  Sender: FDA-Public Use
  Company Number: 2006-02-0468

PATIENT
  Age: 29 Year
  Sex: Male

DRUGS (2)
  1. RIBAVIRIN [Suspect]
     Indication: HEPATITIS C
     Dosage: UNKNOWN
     Route: 065
  2. INTERFERON [Suspect]
     Indication: HEPATITIS C
     Dosage: UNKNOWN
     Route: 065

REACTIONS (6)
  - ANGIOGRAM ABNORMAL [None]
  - RETINAL EXUDATES [None]
  - RETINAL HAEMORRHAGE [None]
  - RETINAL ISCHAEMIA [None]
  - VISUAL ACUITY REDUCED [None]
  - VISUAL FIELD DEFECT [None]
